FAERS Safety Report 5715264-1 (Version None)
Quarter: 2008Q2

REPORT INFORMATION
  Report Type: 
  Country: None (occurrence: None)
  Receive Date: 20080422
  Receipt Date: 20080407
  Transmission Date: 20081010
  Serious: Yes (Hospitalization)
  Sender: FDA-Public Use
  Company Number: 2008S1003414

PATIENT
  Age: 67 Year
  Sex: Female
  Weight: 53.5244 kg

DRUGS (6)
  1. LISINOPRIL [Suspect]
     Indication: HYPERTENSION
     Dosage: 20 MG; DAILY; ORAL
     Route: 048
     Dates: start: 20070424, end: 20080221
  2. AMLODIPINE (CON.) [Concomitant]
  3. HYDROCHLOROTHIAZIDE (CON.) [Concomitant]
  4. LEVOTHYROXINE (CON.) [Concomitant]
  5. LODRANE (CON.) [Concomitant]
  6. ALBUTEROL (CON.) [Concomitant]

REACTIONS (4)
  - NAUSEA [None]
  - PRURITUS [None]
  - RASH MACULO-PAPULAR [None]
  - VOMITING PROJECTILE [None]
